FAERS Safety Report 6631916-3 (Version None)
Quarter: 2010Q1

REPORT INFORMATION
  Report Type: 
  Country: None (occurrence: None)
  Receive Date: 20100312
  Receipt Date: 20090602
  Transmission Date: 20100710
  Serious: No
  Sender: FDA-Public Use
  Company Number: US-BIOGENIDEC-2009BI016944

PATIENT
  Sex: Male

DRUGS (1)
  1. AVONEX [Suspect]
     Indication: MULTIPLE SCLEROSIS
     Route: 030
     Dates: start: 20000301

REACTIONS (6)
  - ARTHRITIS [None]
  - CARDIAC DISORDER [None]
  - DUPUYTREN'S CONTRACTURE [None]
  - LABILE HYPERTENSION [None]
  - NERVOUS SYSTEM DISORDER [None]
  - TYPE 2 DIABETES MELLITUS [None]
